FAERS Safety Report 8762485 (Version 1)
Quarter: 2012Q4

REPORT INFORMATION
  Report Type: 
  Country: US (occurrence: US)
  Receive Date: 20120828
  Receipt Date: 20120828
  Transmission Date: 20130627
  Serious: No
  Sender: FDA-Public Use
  Company Number: US-PFIZER INC-2012207671

PATIENT
  Sex: Female

DRUGS (2)
  1. ADVIL PM [Suspect]
     Indication: PAIN
     Dosage: 2 DF, 1x/day (daily at night)
     Dates: start: 201207
  2. METHADONE [Concomitant]
     Dosage: UNK

REACTIONS (1)
  - Drug screen positive [Unknown]
